FAERS Safety Report 13991310 (Version 3)
Quarter: 2018Q1

REPORT INFORMATION
  Report Type: Spontaneous
  Country: JP (occurrence: JP)
  Receive Date: 20170920
  Receipt Date: 20180122
  Transmission Date: 20180508
  Serious: Yes (Death, Other)
  Sender: FDA-Public Use
  Company Number: JP-009507513-1709JPN001067J

PATIENT
  Age: 12 Year
  Sex: Male
  Weight: 36 kg

DRUGS (8)
  1. CIPROXAN [Concomitant]
     Active Substance: CIPROFLOXACIN
     Dosage: 400 MG, UNK
     Route: 051
     Dates: start: 20170724, end: 20170807
  2. CANCIDAS [Suspect]
     Active Substance: CASPOFUNGIN ACETATE
     Indication: FEBRILE NEUTROPENIA
     Dosage: 70 MG, QD
     Route: 041
     Dates: start: 20170710, end: 20170710
  3. CANCIDAS [Suspect]
     Active Substance: CASPOFUNGIN ACETATE
     Dosage: 70 MG, QD
     Route: 041
     Dates: start: 20170715, end: 20170807
  4. MEROPEN [Concomitant]
     Active Substance: MEROPENEM
     Dosage: 4.5 G, UNK
     Route: 051
     Dates: start: 20170712, end: 20170724
  5. ZOSYN [Concomitant]
     Active Substance: PIPERACILLIN SODIUM\TAZOBACTAM SODIUM
     Dosage: 18 G, UNK
     Route: 051
     Dates: start: 20170724, end: 20170807
  6. CANCIDAS [Suspect]
     Active Substance: CASPOFUNGIN ACETATE
     Indication: FEBRILE NEUTROPENIA
     Dosage: 50 MG, QD
     Route: 041
     Dates: start: 20170711, end: 20170714
  7. LINEZOLID. [Concomitant]
     Active Substance: LINEZOLID
     Dosage: 1200 MG, UNK
     Route: 051
     Dates: start: 20170712, end: 20170724
  8. AMBISOME [Concomitant]
     Active Substance: AMPHOTERICIN B
     Indication: FEBRILE NEUTROPENIA
     Dosage: 200 MG, UNK
     Route: 051
     Dates: start: 20170630, end: 20170807

REACTIONS (3)
  - Pneumonia fungal [Fatal]
  - Drug ineffective [Unknown]
  - Fungal sepsis [Fatal]

NARRATIVE: CASE EVENT DATE: 20170801
